FAERS Safety Report 5006545-8 (Version None)
Quarter: 2006Q2

REPORT INFORMATION
  Report Type: 
  Country: None (occurrence: None)
  Receive Date: 20060516
  Receipt Date: 20060502
  Transmission Date: 20061013
  Serious: Yes (Hospitalization, Other)
  Sender: FDA-Public Use
  Company Number: 2006PV013108

PATIENT
  Age: 73 Year
  Sex: Male
  Weight: 97.5234 kg

DRUGS (5)
  1. BYETTA [Suspect]
     Indication: DIABETES MELLITUS NON-INSULIN-DEPENDENT
     Dosage: SEE IMAGE
     Route: 058
     Dates: start: 20051101, end: 20051201
  2. BYETTA [Suspect]
     Indication: DIABETES MELLITUS NON-INSULIN-DEPENDENT
     Dosage: SEE IMAGE
     Route: 058
     Dates: start: 20051201, end: 20060401
  3. ACTOS [Concomitant]
  4. STARLIX [Concomitant]
  5. GLUCOPHAGE [Concomitant]

REACTIONS (5)
  - DUODENAL OBSTRUCTION [None]
  - METASTASES TO LIVER [None]
  - OBSTRUCTION GASTRIC [None]
  - PANCREATIC CARCINOMA [None]
  - WEIGHT DECREASED [None]
